FAERS Safety Report 10171335 (Version 1)
Quarter: 2014Q2

REPORT INFORMATION
  Report Type: Spontaneous
  Country: US (occurrence: None)
  Receive Date: 20140428
  Receipt Date: 20140428
  Transmission Date: 20141212
  Serious: Yes (Other)
  Sender: FDA-Public Use
  Company Number: 2523595-2014-00127

PATIENT
  Sex: Male

DRUGS (1)
  1. UVADEX [Suspect]
     Indication: GRAFT VERSUS HOST DISEASE IN LIVER
     Dosage: 4 TO DATE

REACTIONS (1)
  - Device issue [None]
